FAERS Safety Report 8603672-0 (Version None)
Quarter: 2012Q3

REPORT INFORMATION
  Report Type: 
  Country: None (occurrence: None)
  Receive Date: 20120817
  Receipt Date: 20120816
  Transmission Date: 20120928
  Serious: Yes (Death, Hospitalization, Other)
  Sender: FDA-Public Use
  Company Number: CO-ABBOTT-12P-036-0969603-00

PATIENT
  Sex: Female
  Weight: 64 kg

DRUGS (2)
  1. HUMIRA [Suspect]
     Indication: CROHN'S DISEASE
     Route: 058
     Dates: start: 20110725, end: 20120721
  2. TRAMADOL HYDROCHLORIDE [Suspect]
     Indication: PAIN
     Dates: start: 20120815, end: 20120815

REACTIONS (4)
  - CARDIO-RESPIRATORY ARREST [None]
  - CARDIAC FAILURE [None]
  - ANAPHYLACTIC SHOCK [None]
  - ARTHRALGIA [None]
